FAERS Safety Report 5123040-6 (Version None)
Quarter: 2006Q4

REPORT INFORMATION
  Report Type: 
  Country: None (occurrence: None)
  Receive Date: 20061009
  Receipt Date: 20060913
  Transmission Date: 20070319
  Serious: Yes (Other)
  Sender: FDA-Public Use
  Company Number: PHEH2006US11697

PATIENT
  Age: 42 Year
  Sex: Male
  Weight: 101.59 kg

DRUGS (1)
  1. LOTREL [Suspect]
     Indication: BLOOD PRESSURE INCREASED
     Dosage: 5/10 MG, QD
     Route: 048
     Dates: start: 20060222, end: 20060816

REACTIONS (1)
  - WEIGHT INCREASED [None]
